FAERS Safety Report 10301876 (Version 1)
Quarter: 2014Q3

REPORT INFORMATION
  Report Type: Spontaneous
  Country: US (occurrence: None)
  Receive Date: 20140709
  Receipt Date: 20140709
  Transmission Date: 20150326
  Serious: No
  Sender: FDA-Public Use
  Company Number: None

PATIENT
  Age: 54 Year
  Sex: Female
  Weight: 81.65 kg

DRUGS (1)
  1. CHLORAPREP [Suspect]
     Active Substance: CHLORHEXIDINE GLUCONATE\ISOPROPYL ALCOHOL
     Indication: SURGERY
     Dates: start: 20140624, end: 20140624

REACTIONS (3)
  - Erythema [None]
  - Urticaria [None]
  - Procedural site reaction [None]

NARRATIVE: CASE EVENT DATE: 20140624
